FAERS Safety Report 20782070 (Version 2)
Quarter: 2022Q2

REPORT INFORMATION
  Report Type: Report from Study
  Country: US (occurrence: US)
  Receive Date: 20220504
  Receipt Date: 20220506
  Transmission Date: 20220721
  Serious: Yes (Hospitalization, Other)
  Sender: FDA-Public Use
  Company Number: US-NOVARTISPH-NVSC2022US098771

PATIENT
  Sex: Male

DRUGS (1)
  1. ENTRESTO [Suspect]
     Active Substance: SACUBITRIL\VALSARTAN
     Indication: Product used for unknown indication
     Dosage: UNK
     Route: 065

REACTIONS (11)
  - Atrial fibrillation [Unknown]
  - Escherichia urinary tract infection [Unknown]
  - Chills [Unknown]
  - Pyrexia [Unknown]
  - Haematuria [Unknown]
  - Dysuria [Unknown]
  - Pulmonary oedema [Unknown]
  - Diabetes mellitus [Unknown]
  - Cardiac failure congestive [Unknown]
  - Hypertension [Unknown]
  - Gout [Unknown]
